FAERS Safety Report 12762674 (Version 6)
Quarter: 2019Q3

REPORT INFORMATION
  Report Type: Spontaneous
  Country: JP (occurrence: JP)
  Receive Date: 20160920
  Receipt Date: 20190703
  Transmission Date: 20191004
  Serious: Yes (Hospitalization, Other)
  Sender: FDA-Public Use
  Company Number: JP-JNJFOC-20160915069

PATIENT
  Age: 66 Year
  Sex: Female
  Weight: 54 kg

DRUGS (14)
  1. CANAGLIFLOZIN TABLET [Suspect]
     Active Substance: CANAGLIFLOZIN
     Indication: TYPE 2 DIABETES MELLITUS
     Route: 048
     Dates: start: 20160302
  2. VEGAMOX [Concomitant]
     Active Substance: MOXIFLOXACIN HYDROCHLORIDE
     Indication: PROPHYLAXIS
     Route: 031
     Dates: start: 20180820, end: 20181028
  3. TEARBALANCE [Concomitant]
     Active Substance: HYALURONATE SODIUM
     Route: 031
     Dates: start: 20181126
  4. RINDERON A [Concomitant]
     Active Substance: BETAMETHASONE SODIUM PHOSPHATE\NEOMYCIN SULFATE
     Route: 031
     Dates: start: 20181018, end: 20181028
  5. BIOFERMIN [Concomitant]
     Active Substance: DIETARY SUPPLEMENT\PROBIOTICS
     Route: 048
     Dates: start: 20181023, end: 20181026
  6. ROSUVASTATIN CALCIUM. [Concomitant]
     Active Substance: ROSUVASTATIN CALCIUM
     Route: 048
     Dates: start: 20180309
  7. BETAMETHASONE SODIUM PHOSPHATE [Concomitant]
     Active Substance: BETAMETHASONE SODIUM PHOSPHATE
     Indication: PROPHYLAXIS
     Route: 031
     Dates: start: 20181018, end: 20181028
  8. CEFDINIR. [Concomitant]
     Active Substance: CEFDINIR
     Indication: PROPHYLAXIS
     Route: 048
     Dates: start: 20181023, end: 20181026
  9. METGLUCO [Concomitant]
     Active Substance: METFORMIN HYDROCHLORIDE
     Indication: TYPE 2 DIABETES MELLITUS
     Route: 048
     Dates: start: 20140521
  10. ZOLPIDEM TARTRATE. [Concomitant]
     Active Substance: ZOLPIDEM TARTRATE
     Route: 048
     Dates: start: 20160623, end: 20160623
  11. ENTEROCOCCUS FAECALIS [Concomitant]
     Active Substance: ENTEROCOCCUS FAECALIS
     Indication: PROPHYLAXIS
     Route: 048
     Dates: start: 20181023, end: 20181026
  12. CRESTOR [Concomitant]
     Active Substance: ROSUVASTATIN CALCIUM
     Route: 048
     Dates: start: 20110928, end: 20160830
  13. CRESTOR [Concomitant]
     Active Substance: ROSUVASTATIN CALCIUM
     Route: 048
     Dates: start: 20160831, end: 20180306
  14. BRONUCK [Concomitant]
     Active Substance: BROMFENAC SODIUM
     Indication: PROPHYLAXIS
     Route: 031
     Dates: start: 20181018, end: 20190204

REACTIONS (2)
  - Cataract [Recovered/Resolved]
  - Synovial cyst [Recovering/Resolving]

NARRATIVE: CASE EVENT DATE: 20160406
